FAERS Safety Report 5427958-6 (Version None)
Quarter: 2007Q3

REPORT INFORMATION
  Report Type: 
  Country: None (occurrence: None)
  Receive Date: 20070828
  Receipt Date: 20070817
  Transmission Date: 20080115
  Serious: Yes (Hospitalization)
  Sender: FDA-Public Use
  Company Number: JP-PFIZER INC-2007042745

PATIENT
  Sex: Female

DRUGS (5)
  1. LIPITOR [Suspect]
     Indication: HYPERLIPIDAEMIA
     Dosage: DAILY DOSE:10MG
     Route: 048
     Dates: start: 20010827, end: 20070523
  2. RISEDRONIC ACID [Suspect]
     Indication: OSTEOPOROSIS
     Dosage: DAILY DOSE:2.5MG
     Route: 048
     Dates: start: 20010827, end: 20070523
  3. CANDESARTAN CILEXETIL [Suspect]
     Indication: HYPERTENSION
     Dosage: DAILY DOSE:8MG
     Route: 048
     Dates: start: 20010827, end: 20070523
  4. ALFACALCIDOL [Suspect]
     Indication: OSTEOPOROSIS
     Dosage: DAILY DOSE:1MCG
     Route: 048
     Dates: start: 20010827, end: 20070523
  5. LAFUTIDINE [Suspect]
     Indication: GASTRITIS
     Dosage: DAILY DOSE:10MG
     Route: 048
     Dates: start: 20010827, end: 20070523

REACTIONS (2)
  - AUTOIMMUNE HEPATITIS [None]
  - LIVER DISORDER [None]
